FAERS Safety Report 8624339-9 (Version None)
Quarter: 2012Q3

REPORT INFORMATION
  Report Type: 
  Country: None (occurrence: None)
  Receive Date: 20120827
  Receipt Date: 20120816
  Transmission Date: 20120928
  Serious: Yes (Hospitalization)
  Sender: FDA-Public Use
  Company Number: US-ACTELION-A-US2012-65565

PATIENT
  Age: 67 Year
  Sex: Female

DRUGS (6)
  1. PRADAXA [Concomitant]
  2. CALCIUM CHANNEL BLOCKERS [Concomitant]
  3. REVATIO [Concomitant]
  4. ADCIRCA [Concomitant]
  5. COUMADIN [Concomitant]
  6. TRACLEER [Suspect]
     Indication: PULMONARY ARTERIAL HYPERTENSION
     Dosage: 125 MG, BID
     Route: 048
     Dates: start: 20090123

REACTIONS (5)
  - DYSPNOEA [None]
  - RESPIRATORY ARREST [None]
  - ASTHENIA [None]
  - RESPIRATORY FAILURE [None]
  - PULMONARY ARTERIAL HYPERTENSION [None]
